FAERS Safety Report 5978007-2 (Version None)
Quarter: 2008Q4

REPORT INFORMATION
  Report Type: 
  Country: None (occurrence: None)
  Receive Date: 20081203
  Receipt Date: 20081126
  Transmission Date: 20090506
  Serious: Yes (Hospitalization, Other)
  Sender: FDA-Public Use
  Company Number: PA-ALLERGAN-0814769US

PATIENT
  Sex: Male
  Weight: 21 kg

DRUGS (2)
  1. BOTULINUM TOXIN TYPE A [Suspect]
     Indication: MUSCLE SPASTICITY
     Dosage: 7 U/KG, SINGLE
     Route: 030
     Dates: start: 20060524, end: 20060524
  2. BOTULINUM TOXIN TYPE A [Suspect]
     Indication: CEREBRAL PALSY
     Dosage: EVERY 3 OR 4 MONTHS
     Route: 030
     Dates: start: 20030101

REACTIONS (28)
  - ASTHENIA [None]
  - ATROPHY [None]
  - BOTULISM [None]
  - BREATH SOUNDS ABNORMAL [None]
  - CEREBRAL ATROPHY [None]
  - CEREBRAL VENTRICLE DILATATION [None]
  - CHOKING [None]
  - CONSTIPATION [None]
  - CONVULSION [None]
  - DEHYDRATION [None]
  - DYSARTHRIA [None]
  - DYSPHAGIA [None]
  - EYELID PTOSIS [None]
  - GASTROENTERITIS [None]
  - HEADACHE [None]
  - HYPOREFLEXIA [None]
  - HYPOTONIA [None]
  - MALAISE [None]
  - MOBILITY DECREASED [None]
  - MUSCULAR WEAKNESS [None]
  - ODYNOPHAGIA [None]
  - PALLOR [None]
  - PYREXIA [None]
  - RESPIRATORY DISORDER [None]
  - SALIVARY HYPERSECRETION [None]
  - STARING [None]
  - VIRAL INFECTION [None]
  - VOMITING [None]
